FAERS Safety Report 7768540-5 (Version None)
Quarter: 2011Q3

REPORT INFORMATION
  Report Type: 
  Country: None (occurrence: None)
  Receive Date: 20110922
  Receipt Date: 20100823
  Transmission Date: 20111222
  Serious: No
  Sender: FDA-Public Use
  Company Number: US-ASTRAZENECA-2010SE39717

PATIENT
  Age: 286 Month
  Sex: Female
  Weight: 90.7 kg

DRUGS (2)
  1. SEROQUEL XR [Suspect]
     Route: 048
  2. SEROQUEL XR [Suspect]
     Indication: BIPOLAR DISORDER
     Route: 048
     Dates: start: 20000101

REACTIONS (4)
  - NAUSEA [None]
  - INSOMNIA [None]
  - MATERNAL EXPOSURE DURING PREGNANCY [None]
  - DIARRHOEA [None]
